FAERS Safety Report 8903256 (Version 2)
Quarter: 2012Q4

REPORT INFORMATION
  Report Type: 
  Country: GB (occurrence: GB)
  Receive Date: 20121112
  Receipt Date: 20121123
  Transmission Date: 20130627
  Serious: Yes (Other)
  Sender: FDA-Public Use
  Company Number: GB-MERCK-1211GBR004058

PATIENT
  Age: 62 Year
  Sex: Male
  Weight: 96 kg

DRUGS (12)
  1. FINASTERIDE [Suspect]
     Indication: BLADDER DISORDER
     Dosage: 5 mg, qd
     Route: 048
     Dates: start: 20121003, end: 20121014
  2. TAMSULOSIN HYDROCHLORIDE [Suspect]
     Indication: BLADDER DISORDER
     Dosage: 400 Microgram, qd
     Dates: start: 20121003, end: 20121014
  3. EZETIMIBE [Concomitant]
     Dosage: 10 mg, qd
  4. LACTULOSE [Concomitant]
     Dosage: 15 ml, prn
  5. METFORMIN HYDROCHLORIDE [Concomitant]
     Dosage: 500 mg, bid
  6. MONTELUKAST SODIUM [Concomitant]
     Dosage: 10 mg, qd
  7. OMEPRAZOLE [Concomitant]
     Dosage: 20 mg, qd
  8. SENNA [Concomitant]
     Dosage: UNK, qd
  9. SITAGLIPTIN PHOSPHATE [Concomitant]
     Dosage: 100 mg, qd
  10. SYMBICORT [Concomitant]
     Dosage: 200 Microgram, bid
     Route: 055
  11. TERBUTALINE SULFATE [Concomitant]
     Dosage: 500 Microgram, prn
     Route: 055
  12. ZOMORPH [Concomitant]
     Dosage: 60 mg, q12h

REACTIONS (9)
  - Headache [Recovering/Resolving]
  - Dizziness [Recovering/Resolving]
  - Abdominal pain [Recovering/Resolving]
  - Malaise [Recovering/Resolving]
  - Chest pain [Recovering/Resolving]
  - Diarrhoea [Recovering/Resolving]
  - Pain [Recovering/Resolving]
  - Palpitations [Recovering/Resolving]
  - Testicular pain [Recovering/Resolving]
